FAERS Safety Report 23195402 (Version 1)
Quarter: 2023Q4

REPORT INFORMATION
  Report Type: Spontaneous
  Country: IT (occurrence: IT)
  Receive Date: 20231117
  Receipt Date: 20231117
  Transmission Date: 20240109
  Serious: Yes (Other)
  Sender: FDA-Public Use
  Company Number: None

PATIENT
  Age: 69 Year
  Sex: Male

DRUGS (1)
  1. GEMCITABINE [Suspect]
     Active Substance: GEMCITABINE
     Indication: Nasal sinus cancer
     Dosage: START OF THERAPY 02/01/2023 - 1ST CYCLE - G1 AND G8 THERAPY EVERY 21 DAYS - 2ND CYCLE 02/21/2023 - 3
     Dates: start: 20230201, end: 20230228

REACTIONS (4)
  - Thrombocytopenia [Recovered/Resolved]
  - Leukopenia [Recovering/Resolving]
  - Neutropenia [Recovering/Resolving]
  - Haemoglobin decreased [Recovering/Resolving]

NARRATIVE: CASE EVENT DATE: 20230221
